FAERS Safety Report 24303905 (Version 1)
Quarter: 2024Q3

REPORT INFORMATION
  Report Type: Spontaneous
  Country: US (occurrence: US)
  Receive Date: 20240910
  Receipt Date: 20240910
  Transmission Date: 20241017
  Serious: Yes (Other)
  Sender: PFIZER
  Company Number: US-PFIZER INC-202400074314

PATIENT
  Age: 71 Year
  Sex: Female
  Weight: 59.864 kg

DRUGS (3)
  1. IBRANCE [Suspect]
     Active Substance: PALBOCICLIB
     Indication: Breast cancer female
     Dosage: 125 MG
     Dates: start: 20240229
  2. IBRANCE [Suspect]
     Active Substance: PALBOCICLIB
     Dosage: 1 TAB PER ORAL EVERY 21 DAYS, 7 DAYS OFF
     Route: 048
     Dates: start: 20240328
  3. FASLODEX [Suspect]
     Active Substance: FULVESTRANT
     Indication: Breast cancer female
     Dosage: UNK
     Dates: start: 20240229

REACTIONS (4)
  - Neutropenia [Unknown]
  - Neoplasm progression [Not Recovered/Not Resolved]
  - Stomatitis [Unknown]
  - Product prescribing error [Unknown]

NARRATIVE: CASE EVENT DATE: 20240301
